FAERS Safety Report 6886893-7 (Version None)
Quarter: 2010Q3

REPORT INFORMATION
  Report Type: 
  Country: None (occurrence: None)
  Receive Date: 20100730
  Receipt Date: 20100715
  Transmission Date: 20110219
  Serious: Yes (Hospitalization)
  Sender: FDA-Public Use
  Company Number: DE-BAYER-201028618GPV

PATIENT
  Age: 69 Year
  Sex: Male
  Weight: 78 kg

DRUGS (9)
  1. SORAFENIB [Suspect]
     Indication: HEPATIC NEOPLASM MALIGNANT
     Dosage: TOTAL DAILY DOSE: 800 MG
     Route: 048
     Dates: start: 20100506
  2. ERLOTINIB OR PLACEBO [Suspect]
     Indication: HEPATIC NEOPLASM MALIGNANT
     Route: 048
     Dates: start: 20100506
  3. AMLODIPINE [Concomitant]
     Indication: HYPERTENSION
     Route: 048
     Dates: start: 20090701
  4. ASPIRIN [Concomitant]
     Indication: POSTOPERATIVE CARE
     Route: 048
     Dates: start: 20090701
  5. BISAFNOLOL [Concomitant]
     Indication: HYPERTENSION
  6. DELIX [Concomitant]
     Indication: PROPHYLAXIS
     Route: 048
     Dates: start: 20090701
  7. BISOHEXAL [Concomitant]
  8. LACTULOSE [Concomitant]
  9. TOREM [Concomitant]

REACTIONS (1)
  - GENERAL PHYSICAL HEALTH DETERIORATION [None]
